FAERS Safety Report 16836918 (Version 1)
Quarter: 2019Q3

REPORT INFORMATION
  Report Type: Spontaneous
  Country: CN (occurrence: CN)
  Receive Date: 20190923
  Receipt Date: 20190923
  Transmission Date: 20191005
  Serious: Yes (Other)
  Sender: FDA-Public Use
  Company Number: CN-BAXTER-2019BAX018327

PATIENT
  Age: 36 Year
  Sex: Female
  Weight: 44.6 kg

DRUGS (9)
  1. ENDOXAN [Suspect]
     Active Substance: CYCLOPHOSPHAMIDE
     Dosage: PC REGIMEN, 4TH ADJUVANT CHEMO. UNIT AND RE-INTRODUCED DOSES: ENDOXAN0.7G+NS100ML DOSE RE-INTRODUCED
     Route: 041
     Dates: start: 20190813, end: 20190813
  2. LEUPRORELIN [Concomitant]
     Active Substance: LEUPROLIDE ACETATE
     Indication: PROPHYLAXIS
     Dosage: MICROSPHERE POWDER INJECTION
     Route: 065
     Dates: start: 20190610
  3. 0.9% SODIUM CHLORIDE INJECTION [Suspect]
     Active Substance: SODIUM CHLORIDE
     Dosage: PC REGIMEN. 4TH ADJUVANT CHEMO. UNIT DOSE AND RE-INTRODUCED DOSE: ENDOXAN 0.7G + NS 100ML
     Route: 041
     Dates: start: 20190813
  4. 0.9% SODIUM CHLORIDE INJECTION [Suspect]
     Active Substance: SODIUM CHLORIDE
     Dosage: PC REGIMEN, 4TH ADJUVANT CHEMO. UNIT AND RE-INTRODUCED DOSES: ENDOXAN0.7G+NS100ML DOSE RE-INTRODUCED
     Route: 041
     Dates: start: 20190813, end: 20190813
  5. ENDOXAN [Suspect]
     Active Substance: CYCLOPHOSPHAMIDE
     Dosage: PC REGIMEN. 4TH ADJUVANT CHEMO. UNIT DOSE AND RE-INTRODUCED DOSE: ENDOXAN 0.7G + NS 100ML
     Route: 041
     Dates: start: 20190813
  6. DOCETAXEL. [Suspect]
     Active Substance: DOCETAXEL
     Indication: BREAST CANCER FEMALE
     Dosage: TC REGIMEN. 3 ADJUVANT CHEMOTHERAPIES
     Route: 065
  7. ENDOXAN [Suspect]
     Active Substance: CYCLOPHOSPHAMIDE
     Indication: BREAST CANCER FEMALE
     Dosage: TC REGIMEN. 3 ADJUVANT CHEMOTHERAPIES
     Route: 041
  8. 0.9% SODIUM CHLORIDE INJECTION [Suspect]
     Active Substance: SODIUM CHLORIDE
     Indication: MEDICATION DILUTION
     Dosage: TC REGIMEN. 3 ADJUVANT CHEMOTHERAPIES
     Route: 041
  9. PACLITAXEL LIPOSOME [Suspect]
     Active Substance: PACLITAXEL
     Indication: BREAST CANCER FEMALE
     Dosage: PC REGIMEN. 4TH ADJUVANT CHEMOTHERAPY
     Route: 065
     Dates: start: 20190813, end: 201908

REACTIONS (3)
  - Vomiting [Recovering/Resolving]
  - Chromaturia [Recovered/Resolved]
  - Bone marrow failure [Recovering/Resolving]

NARRATIVE: CASE EVENT DATE: 20190813
